FAERS Safety Report 4412218-2 (Version None)
Quarter: 2004Q2

REPORT INFORMATION
  Report Type: 
  Country: None (occurrence: None)
  Receive Date: 20040630
  Receipt Date: 20040325
  Transmission Date: 20050107
  Serious: No
  Sender: FDA-Public Use
  Company Number: 04P-163-0254614-00

PATIENT
  Age: 77 Year
  Sex: Female
  Weight: 68.9467 kg

DRUGS (8)
  1. HUMIRA [Suspect]
     Indication: RHEUMATOID ARTHRITIS
     Dosage: 40 MG, 1 IN 2 WK; SUBCUTANEOUS
     Route: 058
     Dates: start: 20040123, end: 20040201
  2. LEVOTHYROXINE SODIUM [Concomitant]
  3. LOSARTAN POTASSIUM [Concomitant]
  4. ATENOLOL [Concomitant]
  5. POTASSIUM [Concomitant]
  6. HYDROCHLOROTHIAZIDE [Concomitant]
  7. EURSO 50 [Concomitant]
  8. METHOTREXATE [Concomitant]

REACTIONS (3)
  - BLISTER [None]
  - INJECTION SITE BURNING [None]
  - INJECTION SITE RASH [None]
